FAERS Safety Report 10228543 (Version 1)
Quarter: 2014Q2

REPORT INFORMATION
  Report Type: Spontaneous
  Country: US (occurrence: US)
  Receive Date: 20140610
  Receipt Date: 20140610
  Transmission Date: 20141212
  Serious: Yes (Hospitalization)
  Sender: FDA-Public Use
  Company Number: US-ROXANE LABORATORIES, INC.-2014-RO-00855RO

PATIENT
  Age: 33 Year
  Sex: Female

DRUGS (3)
  1. ZOLPIDEM [Suspect]
     Indication: INSOMNIA
     Dosage: 10 MG
     Route: 065
  2. ZOLPIDEM [Suspect]
     Dosage: 40 MG
     Route: 065
  3. CLONAZEPAM [Suspect]
     Indication: INSOMNIA
     Route: 065

REACTIONS (2)
  - Metamorphopsia [Recovered/Resolved]
  - Schizoaffective disorder [Recovered/Resolved]
